FAERS Safety Report 25529164 (Version 2)
Quarter: 2025Q4

REPORT INFORMATION
  Report Type: Spontaneous
  Country: US (occurrence: US)
  Receive Date: 20250708
  Receipt Date: 20251021
  Transmission Date: 20260118
  Serious: No
  Sender: PFIZER
  Company Number: US-PFIZER INC-202500051211

PATIENT
  Age: 65 Year
  Sex: Female
  Weight: 76.2 kg

DRUGS (4)
  1. XELJANZ XR [Suspect]
     Active Substance: TOFACITINIB CITRATE
     Indication: Rheumatoid arthritis
     Dosage: 11 MG, 1X/DAY
     Dates: end: 202408
  2. XELJANZ XR [Suspect]
     Active Substance: TOFACITINIB CITRATE
     Dosage: 11 MG
  3. METHOTREXATE [Concomitant]
     Active Substance: METHOTREXATE
     Indication: Rheumatoid arthritis
     Dosage: 2.5 MG (6 TABLETS ONCE A WEEK)
     Dates: start: 2010
  4. LEFLUNOMIDE [Concomitant]
     Active Substance: LEFLUNOMIDE
     Indication: Rheumatoid arthritis
     Dosage: 20 MG, 1X/DAY (A PILL)
     Dates: start: 2010

REACTIONS (7)
  - Daydreaming [Unknown]
  - Malaise [Unknown]
  - Anxiety [Unknown]
  - Confusional state [Unknown]
  - Psychiatric symptom [Unknown]
  - Off label use [Unknown]
  - Product use issue [Unknown]
